FAERS Safety Report 22624577 (Version 1)
Quarter: 2023Q2

REPORT INFORMATION
  Report Type: Spontaneous
  Country: US (occurrence: None)
  Receive Date: 20230616
  Receipt Date: 20230616
  Transmission Date: 20230722
  Serious: Yes (Hospitalization)
  Sender: FDA-Public Use
  Company Number: None

PATIENT
  Sex: Male

DRUGS (2)
  1. PREDNISONE [Suspect]
     Active Substance: PREDNISONE
     Indication: Prostate cancer
     Dosage: FREQUENCY : TWICE A DAY;?
     Route: 048
     Dates: start: 202208
  2. ABIRATERONE [Suspect]
     Active Substance: ABIRATERONE

REACTIONS (5)
  - Dizziness [None]
  - Blood pressure increased [None]
  - Blood pressure decreased [None]
  - Syncope [None]
  - Dehydration [None]
